FAERS Safety Report 11189215 (Version 2)
Quarter: 2015Q3

REPORT INFORMATION
  Report Type: Not Available
  Country: VN (occurrence: VN)
  Receive Date: 20150615
  Receipt Date: 20150812
  Transmission Date: 20151125
  Serious: Yes (Life-Threatening)
  Sender: FDA-Public Use
  Company Number: VN-LUPIN PHARMACEUTICALS INC.-2015-01664

PATIENT
  Sex: Male

DRUGS (3)
  1. CEFAXIL 750 MG [Suspect]
     Active Substance: CEFUROXIME SODIUM
     Indication: LARYNGITIS
  2. CEFAXIL 750 MG [Suspect]
     Active Substance: CEFUROXIME SODIUM
     Indication: OROPHARYNGEAL PAIN
     Route: 065
     Dates: start: 20150527
  3. CEFAXIL 750 MG [Suspect]
     Active Substance: CEFUROXIME SODIUM
     Indication: PNEUMONIA

REACTIONS (6)
  - Respiratory arrest [Unknown]
  - Cardiac arrest [Unknown]
  - Cardiac failure [Unknown]
  - Apnoea [Unknown]
  - Shock [Unknown]
  - Cyanosis [Unknown]

NARRATIVE: CASE EVENT DATE: 20150527
